FAERS Safety Report 25817172 (Version 1)
Quarter: 2025Q3

REPORT INFORMATION
  Report Type: Spontaneous
  Country: PK (occurrence: PK)
  Receive Date: 20250918
  Receipt Date: 20250918
  Transmission Date: 20251020
  Serious: Yes (Other)
  Sender: PFIZER
  Company Number: PK-PFIZER INC-2021368331

PATIENT
  Age: 42 Year
  Sex: Female

DRUGS (11)
  1. IBRANCE [Suspect]
     Active Substance: PALBOCICLIB
     Indication: Breast cancer stage IV
     Route: 048
     Dates: start: 20210402
  2. IBRANCE [Suspect]
     Active Substance: PALBOCICLIB
     Route: 048
     Dates: start: 202110
  3. IBRANCE [Suspect]
     Active Substance: PALBOCICLIB
     Route: 048
     Dates: start: 20230102
  4. IBRANCE [Suspect]
     Active Substance: PALBOCICLIB
     Route: 048
  5. NOLVADEX [Concomitant]
     Active Substance: TAMOXIFEN CITRATE
     Indication: Therapeutic procedure
     Dosage: 10 MG, 1X/DAY (ONCE DAILY)
  6. LETARA [Concomitant]
  7. DOXO [Concomitant]
  8. TAMOXIFEN [Concomitant]
     Active Substance: TAMOXIFEN
  9. ZOMETA [Concomitant]
     Active Substance: ZOLEDRONIC ACID
  10. PACLITAXEL [Concomitant]
     Active Substance: PACLITAXEL
  11. ANASTROZOLE [Concomitant]
     Active Substance: ANASTROZOLE
     Dosage: 1 MG, DAILY (1 TAB DAILY/1 X OD DAILY)

REACTIONS (6)
  - Critical illness [Unknown]
  - Breast cancer stage IV [Unknown]
  - Malignant neoplasm progression [Unknown]
  - Off label use [Unknown]
  - Product use issue [Unknown]
  - Product prescribing error [Unknown]

NARRATIVE: CASE EVENT DATE: 20210402
